FAERS Safety Report 19200780 (Version 1)
Quarter: 2021Q2

REPORT INFORMATION
  Report Type: Spontaneous
  Country: JP (occurrence: JP)
  Receive Date: 20210430
  Receipt Date: 20210430
  Transmission Date: 20210717
  Serious: Yes (Other)
  Sender: FDA-Public Use
  Company Number: NVSJ2021JP006018

PATIENT
  Age: 64 Year
  Sex: Female

DRUGS (2)
  1. PAZOPANIB [Suspect]
     Active Substance: PAZOPANIB
     Indication: RENAL CANCER METASTATIC
     Dosage: UNK
     Route: 048
  2. PAZOPANIB [Suspect]
     Active Substance: PAZOPANIB
     Indication: METASTASIS

REACTIONS (4)
  - Haemophagocytic lymphohistiocytosis [Unknown]
  - Malaise [Unknown]
  - Erythema multiforme [Recovered/Resolved]
  - Pyrexia [Unknown]
